FAERS Safety Report 9669784 (Version 1)
Quarter: 2013Q4

REPORT INFORMATION
  Report Type: Spontaneous
  Country: US (occurrence: US)
  Receive Date: 20131105
  Receipt Date: 20131105
  Transmission Date: 20140711
  Serious: Yes (Other)
  Sender: FDA-Public Use
  Company Number: US-PFIZER INC-2013314475

PATIENT
  Age: 66 Year
  Sex: Male
  Weight: 88.44 kg

DRUGS (3)
  1. LYRICA [Suspect]
     Indication: DIABETIC NEUROPATHY
     Dosage: 300 MG, 2X/DAY
  2. VICODIN [Suspect]
     Indication: PAIN
     Dosage: (HYDROCODONE BITARTRATE 500MG, ACETAMINOPHEN 5MG), UNK
     Dates: end: 2013
  3. ZANAFLEX [Suspect]
     Indication: MUSCLE RELAXANT THERAPY
     Dosage: UNK
     Dates: end: 2013

REACTIONS (2)
  - Back disorder [Unknown]
  - Drug hypersensitivity [Unknown]
